FAERS Safety Report 5125718-7 (Version None)
Quarter: 2006Q4

REPORT INFORMATION
  Report Type: 
  Country: None (occurrence: None)
  Receive Date: 20061012
  Receipt Date: 20061004
  Transmission Date: 20070319
  Serious: Yes (Hospitalization)
  Sender: FDA-Public Use
  Company Number: US-JNJFOC-20051104356

PATIENT
  Sex: Female
  Weight: 66.68 kg

DRUGS (2)
  1. RISPERDAL [Suspect]
     Indication: DRUG USE FOR UNKNOWN INDICATION
  2. HALDOL [Suspect]
     Indication: DRUG USE FOR UNKNOWN INDICATION

REACTIONS (42)
  - ABDOMINAL PAIN [None]
  - ABDOMINAL PAIN UPPER [None]
  - ANOREXIA [None]
  - ANXIETY [None]
  - ARTHROPOD BITE [None]
  - BACK INJURY [None]
  - BACK PAIN [None]
  - BLOOD THYROID STIMULATING HORMONE DECREASED [None]
  - CONDITION AGGRAVATED [None]
  - DEATH OF CHILD [None]
  - DIABETES MELLITUS [None]
  - DIARRHOEA [None]
  - DRUG HYPERSENSITIVITY [None]
  - DRUG SCREEN POSITIVE [None]
  - DRUG WITHDRAWAL SYNDROME [None]
  - DYSTONIA [None]
  - EAR HAEMORRHAGE [None]
  - ECONOMIC PROBLEM [None]
  - FAECES DISCOLOURED [None]
  - FALL [None]
  - GASTROOESOPHAGEAL REFLUX DISEASE [None]
  - HAEMORRHAGE [None]
  - HEAD INJURY [None]
  - HEART RATE INCREASED [None]
  - LOSS OF CONSCIOUSNESS [None]
  - MULTIPLE DRUG OVERDOSE [None]
  - NAUSEA [None]
  - NECK INJURY [None]
  - PAIN IN JAW [None]
  - PANIC DISORDER [None]
  - PHARYNGITIS STREPTOCOCCAL [None]
  - PHARYNGOLARYNGEAL PAIN [None]
  - REFUSAL OF TREATMENT BY PATIENT [None]
  - RESPIRATORY RATE INCREASED [None]
  - SELF-MEDICATION [None]
  - SEXUAL ASSAULT VICTIM [None]
  - SINUSITIS [None]
  - SWELLING [None]
  - SWOLLEN TONGUE [None]
  - TREATMENT NONCOMPLIANCE [None]
  - VOMITING [None]
  - WEIGHT DECREASED [None]
